FAERS Safety Report 8975816 (Version 2)
Quarter: 2013Q2

REPORT INFORMATION
  Report Type: Spontaneous
  Country: US (occurrence: US)
  Receive Date: 20121219
  Receipt Date: 20130624
  Transmission Date: 20140414
  Serious: Yes (Other)
  Sender: FDA-Public Use
  Company Number: CHPA2012US025003

PATIENT
  Age: 75 Year
  Sex: Female

DRUGS (1)
  1. MAALOX ANTACID/ANTIGAS MAX QDTABS WILDB [Suspect]
     Indication: GASTROOESOPHAGEAL REFLUX DISEASE
     Dosage: 2 DF, QMO
     Route: 048

REACTIONS (4)
  - Heart rate irregular [Not Recovered/Not Resolved]
  - Ulcer [Recovered/Resolved]
  - Off label use [Unknown]
  - Expired drug administered [Unknown]
